FAERS Safety Report 18675566 (Version 2)
Quarter: 2021Q1

REPORT INFORMATION
  Report Type: Report from Study
  Country: US (occurrence: US)
  Receive Date: 20201229
  Receipt Date: 20210225
  Transmission Date: 20210419
  Serious: Yes (Hospitalization, Other)
  Sender: FDA-Public Use
  Company Number: US-TAKEDA-2020TUS060525

PATIENT
  Age: 72 Year
  Sex: Male

DRUGS (4)
  1. TEDUGLUTIDE [Suspect]
     Active Substance: TEDUGLUTIDE
     Indication: PRODUCT USED FOR UNKNOWN INDICATION
     Dosage: 0.415; UNIT: UNKNOWN, QD
     Route: 058
     Dates: start: 20191120
  2. TEDUGLUTIDE [Suspect]
     Active Substance: TEDUGLUTIDE
     Indication: PRODUCT USED FOR UNKNOWN INDICATION
     Dosage: 0.415; UNIT: UNKNOWN, QD
     Route: 058
     Dates: start: 20191120
  3. TEDUGLUTIDE [Suspect]
     Active Substance: TEDUGLUTIDE
     Indication: PRODUCT USED FOR UNKNOWN INDICATION
     Dosage: 0.415; UNIT: UNKNOWN, QD
     Route: 058
     Dates: start: 20191120
  4. TEDUGLUTIDE [Suspect]
     Active Substance: TEDUGLUTIDE
     Indication: PRODUCT USED FOR UNKNOWN INDICATION
     Dosage: 0.415; UNIT: UNKNOWN, QD
     Route: 058
     Dates: start: 20191120

REACTIONS (5)
  - Renal failure [Recovered/Resolved]
  - Dizziness [Recovered/Resolved]
  - Hospitalisation [Recovering/Resolving]
  - Dehydration [Recovered/Resolved]
  - Product dose omission issue [Unknown]

NARRATIVE: CASE EVENT DATE: 20201212
